FAERS Safety Report 24580294 (Version 1)
Quarter: 2024Q4

REPORT INFORMATION
  Report Type: Spontaneous
  Country: US (occurrence: US)
  Receive Date: 20241105
  Receipt Date: 20241105
  Transmission Date: 20250115
  Serious: Yes (Other)
  Sender: AMGEN
  Company Number: US-AMGEN-USASP2024214918

PATIENT
  Age: 52 Year
  Sex: Male

DRUGS (5)
  1. PREDNISONE [Suspect]
     Active Substance: PREDNISONE
     Indication: Eye infection syphilitic
     Dosage: UNK
     Route: 048
  2. PREDNISONE [Suspect]
     Active Substance: PREDNISONE
     Indication: Papillitis
  3. PREDNISOLONE [Concomitant]
     Active Substance: PREDNISOLONE
  4. ATROPINE [Concomitant]
     Active Substance: ATROPINE
  5. PENICILLIN [Concomitant]
     Active Substance: PENICILLIN
     Route: 040

REACTIONS (4)
  - Eye infection syphilitic [Unknown]
  - Syphilis [Unknown]
  - Drug effective for unapproved indication [Unknown]
  - Off label use [Unknown]
